FAERS Safety Report 8809498 (Version 2)
Quarter: 2012Q4

REPORT INFORMATION
  Report Type: 
  Country: US (occurrence: US)
  Receive Date: 20120926
  Receipt Date: 20121019
  Transmission Date: 20130627
  Serious: No
  Sender: FDA-Public Use
  Company Number: US-ASTRAZENECA-2012SE71756

PATIENT
  Age: 49 Year
  Sex: Female
  Weight: 80.3 kg

DRUGS (10)
  1. ANASTROZOLE [Suspect]
     Indication: BREAST CANCER
     Route: 048
     Dates: start: 20120901
  2. SYNTHROID [Concomitant]
     Indication: THYROID DISORDER
  3. TRANZADONE [Concomitant]
  4. BUPROPION XL [Concomitant]
     Indication: DEPRESSION
  5. BUPROPION XL [Concomitant]
     Indication: OBSESSIVE-COMPULSIVE DISORDER
  6. BUPROPION XL [Concomitant]
     Indication: ANXIETY
  7. LEXAPRO [Concomitant]
  8. LANSOPRAZOLE [Concomitant]
     Indication: GASTROOESOPHAGEAL REFLUX DISEASE
  9. PRAMIPEXOLE DI HCL [Concomitant]
     Indication: RESTLESS LEGS SYNDROME
  10. MVI [Concomitant]

REACTIONS (10)
  - Dysuria [Not Recovered/Not Resolved]
  - Anxiety [Not Recovered/Not Resolved]
  - Bruxism [Unknown]
  - Toothache [Unknown]
  - Balance disorder [Not Recovered/Not Resolved]
  - Gastrooesophageal reflux disease [Not Recovered/Not Resolved]
  - Oropharyngeal pain [Unknown]
  - Cough [Unknown]
  - Tic [Not Recovered/Not Resolved]
  - Pollakiuria [Unknown]
